FAERS Safety Report 7799271-3 (Version None)
Quarter: 2011Q4

REPORT INFORMATION
  Report Type: 
  Country: None (occurrence: None)
  Receive Date: 20111006
  Receipt Date: 20110606
  Transmission Date: 20120403
  Serious: No
  Sender: FDA-Public Use
  Company Number: US-GLAXOSMITHKLINE-A0930391A

PATIENT
  Age: 46 Year
  Sex: Female
  Weight: 48.2 kg

DRUGS (2)
  1. MULTI-VITAMIN [Concomitant]
  2. DUAC [Suspect]
     Indication: ACNE
     Dosage: 1DROP PER DAY
     Route: 061
     Dates: start: 20110601, end: 20110603

REACTIONS (6)
  - PRURITUS [None]
  - RASH [None]
  - SKIN IRRITATION [None]
  - DISCOMFORT [None]
  - URTICARIA [None]
  - ERYTHEMA [None]
